FAERS Safety Report 6531560-2 (Version None)
Quarter: 2010Q1

REPORT INFORMATION
  Report Type: 
  Country: None (occurrence: None)
  Receive Date: 20100108
  Receipt Date: 20100108
  Transmission Date: 20100710
  Serious: Yes (Hospitalization, Other)
  Sender: FDA-Public Use
  Company Number: US-ABBOTT-09P-163-0616906-00

PATIENT
  Sex: Female

DRUGS (4)
  1. PREVACID [Suspect]
     Indication: GASTRIC ULCER
     Route: 048
  2. TOPROL-XL [Concomitant]
     Indication: HEART RATE IRREGULAR
     Route: 048
  3. SIMVASTATIN [Concomitant]
     Indication: BLOOD CHOLESTEROL INCREASED
     Route: 048
  4. ACETYLSALICYLIC ACID [Concomitant]
     Indication: BLOOD CHOLESTEROL INCREASED
     Route: 048

REACTIONS (2)
  - HIATUS HERNIA [None]
  - HOSPITALISATION [None]
